FAERS Safety Report 19004075 (Version 1)
Quarter: 2021Q1

REPORT INFORMATION
  Report Type: Spontaneous
  Country: TW (occurrence: TW)
  Receive Date: 20210312
  Receipt Date: 20210312
  Transmission Date: 20210420
  Serious: Yes (Hospitalization)
  Sender: FDA-Public Use
  Company Number: NVSC2021TW045300

PATIENT
  Age: 59 Year
  Sex: Male

DRUGS (1)
  1. TEGRETOL XR [Suspect]
     Active Substance: CARBAMAZEPINE
     Indication: TRIGEMINAL NEURALGIA
     Dosage: 200 MG, BID
     Route: 065
     Dates: start: 20190128, end: 20190213

REACTIONS (10)
  - Drug eruption [Unknown]
  - Thrombocytopenia [Unknown]
  - Fatigue [Unknown]
  - Stevens-Johnson syndrome [Unknown]
  - Pruritus [Unknown]
  - Pain in extremity [Unknown]
  - Oral pain [Unknown]
  - Erythema [Unknown]
  - Malaise [Unknown]
  - Ulcer [Unknown]

NARRATIVE: CASE EVENT DATE: 20190211
